FAERS Safety Report 26084042 (Version 1)
Quarter: 2025Q4

REPORT INFORMATION
  Report Type: Spontaneous
  Country: US (occurrence: None)
  Receive Date: 20251124
  Receipt Date: 20251124
  Transmission Date: 20260117
  Serious: Yes (Death)
  Sender: FDA-CTU
  Company Number: None

PATIENT
  Age: 82 Year
  Sex: Male
  Weight: 78.75 kg

DRUGS (11)
  1. ATORVASTATIN [Suspect]
     Active Substance: ATORVASTATIN
     Indication: Blood cholesterol increased
     Dates: start: 20040401, end: 20250721
  2. CARBIDOPA\LEVODOPA [Suspect]
     Active Substance: CARBIDOPA\LEVODOPA
  3. EZETIMIBE [Suspect]
     Active Substance: EZETIMIBE
  4. PRILOSEC [Concomitant]
     Active Substance: OMEPRAZOLE MAGNESIUM
  5. METOPROLOL [Concomitant]
     Active Substance: METOPROLOL
  6. LIPITOR [Concomitant]
     Active Substance: ATORVASTATIN CALCIUM
  7. ZETIA [Concomitant]
     Active Substance: EZETIMIBE
  8. SINEMET [Concomitant]
     Active Substance: CARBIDOPA\LEVODOPA
  9. VITAMINS [Concomitant]
     Active Substance: VITAMINS
  10. ALLEGRA [Concomitant]
     Active Substance: FEXOFENADINE HYDROCHLORIDE
  11. Advil, [Concomitant]

REACTIONS (2)
  - Hepatocellular carcinoma [None]
  - Ulcer haemorrhage [None]

NARRATIVE: CASE EVENT DATE: 20250809
